FAERS Safety Report 5059125-2 (Version None)
Quarter: 2006Q3

REPORT INFORMATION
  Report Type: 
  Country: None (occurrence: None)
  Receive Date: 20060718
  Receipt Date: 20060705
  Transmission Date: 20061208
  Serious: Yes (Death, Hospitalization, Other)
  Sender: FDA-Public Use
  Company Number: 2005-01743

PATIENT
  Age: 64 Year
  Sex: Male
  Weight: 77.1 kg

DRUGS (6)
  1. VELCADE [Suspect]
     Indication: NON-SMALL CELL LUNG CANCER
     Dosage: 1.75 .4 MG
     Dates: start: 20040827, end: 20050505
  2. TARCEVA [Suspect]
     Indication: NON-SMALL CELL LUNG CANCER
     Dosage: 150.00 MG, QD, ORAL
     Route: 048
     Dates: start: 20050610, end: 20050629
  3. DECADRON [Concomitant]
  4. METOPROLOL SUCCINATE [Concomitant]
  5. ZESTORETIC [Concomitant]
  6. DECADRON [Concomitant]

REACTIONS (2)
  - HAEMOPTYSIS [None]
  - THROMBOTIC THROMBOCYTOPENIC PURPURA [None]
